FAERS Safety Report 14271750 (Version 3)
Quarter: 2018Q1

REPORT INFORMATION
  Report Type: Spontaneous
  Country: RU (occurrence: RU)
  Receive Date: 20171211
  Receipt Date: 20180316
  Transmission Date: 20180508
  Serious: Yes (Death, Other)
  Sender: FDA-Public Use
  Company Number: RU-REGENERON PHARMACEUTICALS, INC.-2017-28761

PATIENT

DRUGS (2)
  1. EYLEA [Suspect]
     Active Substance: AFLIBERCEPT
     Indication: RETINOPATHY OF PREMATURITY
     Dosage: 0.6 MG/0.015 ML, PRN
     Dates: start: 20161102
  2. EYLEA [Suspect]
     Active Substance: AFLIBERCEPT
     Dosage: 0.6 MG/0.015 ML, PRN
     Dates: start: 20161102

REACTIONS (14)
  - Posthaemorrhagic hydrocephalus [Fatal]
  - CNS ventriculitis [Fatal]
  - Retinal neovascularisation [Unknown]
  - Drug administered to patient of inappropriate age [Unknown]
  - Trisomy 21 [Fatal]
  - Foot deformity [Fatal]
  - Pulmonary artery stenosis [Fatal]
  - Pupil fixed [Unknown]
  - Product use in unapproved indication [Unknown]
  - Encephalitis [Fatal]
  - Pneumonia [Fatal]
  - Patent ductus arteriosus [Fatal]
  - Iris vascular disorder [Unknown]
  - Off label use [Unknown]
